FAERS Safety Report 4828187-7 (Version None)
Quarter: 2005Q4

REPORT INFORMATION
  Report Type: 
  Country: None (occurrence: None)
  Receive Date: 20051115
  Receipt Date: 20051107
  Transmission Date: 20060501
  Serious: Yes (Other)
  Sender: FDA-Public Use
  Company Number: US-GLAXOSMITHKLINE-A0582057A

PATIENT
  Age: 36 Year
  Sex: Male

DRUGS (2)
  1. PAXIL [Suspect]
     Dosage: 37.5MG PER DAY
     Route: 048
     Dates: end: 20051104
  2. NO CONCURRENT MEDICATIONS [Concomitant]

REACTIONS (5)
  - FEAR [None]
  - HYPOAESTHESIA [None]
  - NEGATIVE THOUGHTS [None]
  - NIGHTMARE [None]
  - SUICIDAL IDEATION [None]
